FAERS Safety Report 11211180 (Version 1)
Quarter: 2015Q2

REPORT INFORMATION
  Report Type: Spontaneous
  Country: US (occurrence: None)
  Receive Date: 20150619
  Receipt Date: 20150619
  Transmission Date: 20150821
  Serious: Yes (Hospitalization)
  Sender: FDA-Public Use
  Company Number: None

PATIENT
  Age: 58 Year
  Sex: Male
  Weight: 88.6 kg

DRUGS (10)
  1. SUCCINATE [Concomitant]
  2. ALEVE [Concomitant]
     Active Substance: NAPROXEN SODIUM
  3. DENTAL PAIN [Concomitant]
  4. METOPROLOL [Concomitant]
     Active Substance: METOPROLOL
  5. IBUPROFEN. [Concomitant]
     Active Substance: IBUPROFEN
  6. PLAVIX [Suspect]
     Active Substance: CLOPIDOGREL BISULFATE
     Indication: MYOCARDIAL INFARCTION
     Route: 048
  7. PLAVIX [Suspect]
     Active Substance: CLOPIDOGREL BISULFATE
     Indication: CORONARY ARTERY DISEASE
     Route: 048
  8. CRESTOR [Concomitant]
     Active Substance: ROSUVASTATIN CALCIUM
  9. ASA [Suspect]
     Active Substance: ASPIRIN
     Indication: CORONARY ARTERY DISEASE
     Dosage: CHRONIC
     Route: 048
  10. ASA [Suspect]
     Active Substance: ASPIRIN
     Indication: MYOCARDIAL INFARCTION
     Dosage: CHRONIC
     Route: 048

REACTIONS (2)
  - Haemorrhagic anaemia [None]
  - Duodenal ulcer haemorrhage [None]

NARRATIVE: CASE EVENT DATE: 20150228
